FAERS Safety Report 10056611 (Version 1)
Quarter: 2014Q2

REPORT INFORMATION
  Report Type: Report from Study
  Country: US (occurrence: US)
  Receive Date: 20140403
  Receipt Date: 20140403
  Transmission Date: 20141212
  Serious: Yes (Hospitalization)
  Sender: FDA-Public Use
  Company Number: US-ACTELION-A-US2014-96680

PATIENT
  Age: 50 Year
  Sex: Female

DRUGS (2)
  1. VELETRI [Suspect]
     Indication: CONNECTIVE TISSUE DISORDER
     Dosage: 22.3 NG/KG, PER MIN
     Route: 041
     Dates: start: 20110323
  2. REVATIO [Concomitant]

REACTIONS (1)
  - Pneumonia [Unknown]
